FAERS Safety Report 4308724-1 (Version None)
Quarter: 2004Q1

REPORT INFORMATION
  Report Type: 
  Country: None (occurrence: None)
  Receive Date: 20040227
  Receipt Date: 20040223
  Transmission Date: 20041129
  Serious: Yes (Other)
  Sender: FDA-Public Use
  Company Number: 2004200445US

PATIENT
  Sex: Female

DRUGS (2)
  1. DEPO-MEDROL [Suspect]
     Dosage: EPIDURAL
     Route: 008
  2. MS (UNKNOWN MEDICATION) () [Suspect]
     Dosage: EPIDURAL
     Route: 008

REACTIONS (9)
  - DYSPNOEA [None]
  - DYSURIA [None]
  - FACE OEDEMA [None]
  - HEART RATE DECREASED [None]
  - MEDICATION ERROR [None]
  - RASH [None]
  - URINARY RETENTION [None]
  - VISION BLURRED [None]
  - VISUAL DISTURBANCE [None]
